FAERS Safety Report 4550658-1 (Version None)
Quarter: 2005Q1

REPORT INFORMATION
  Report Type: 
  Country: None (occurrence: None)
  Receive Date: 20050112
  Receipt Date: 20050107
  Transmission Date: 20050727
  Serious: Yes (Hospitalization)
  Sender: FDA-Public Use
  Company Number: IT-ABBOTT-05P-083-0285874-00

PATIENT
  Sex: Male

DRUGS (4)
  1. DEPAKENE [Suspect]
     Indication: EPILEPSY
     Route: 048
     Dates: start: 20040320, end: 20040420
  2. QUETIAPINE [Suspect]
     Indication: SCHIZOPHRENIA
     Route: 048
     Dates: start: 20040325, end: 20040426
  3. RISPERIDONE [Suspect]
     Indication: SCHIZOPHRENIA
     Route: 048
     Dates: start: 20040419, end: 20040421
  4. PHENOBARBITAL SODIUM [Concomitant]
     Indication: EPILEPSY
     Route: 048
     Dates: start: 20040420, end: 20040421

REACTIONS (1)
  - BICYTOPENIA [None]
